FAERS Safety Report 21195926 (Version 1)
Quarter: 2022Q3

REPORT INFORMATION
  Report Type: Report from Study
  Country: CA (occurrence: CA)
  Receive Date: 20220810
  Receipt Date: 20220810
  Transmission Date: 20221027
  Serious: Yes (Life-Threatening, Hospitalization)
  Sender: FDA-Public Use
  Company Number: CA-NOVARTISPH-NVSC2022CA003152

PATIENT
  Age: 57 Year
  Sex: Male

DRUGS (1)
  1. MAYZENT [Suspect]
     Active Substance: SIPONIMOD
     Indication: Secondary progressive multiple sclerosis
     Dosage: UNK
     Route: 048
     Dates: start: 20210305

REACTIONS (5)
  - Feeling abnormal [Recovering/Resolving]
  - Hyperglycaemia [Recovering/Resolving]
  - Influenza [Unknown]
  - Mobility decreased [Unknown]
  - Product supply issue [Unknown]

NARRATIVE: CASE EVENT DATE: 20220622
